FAERS Safety Report 5311283-8 (Version None)
Quarter: 2007Q2

REPORT INFORMATION
  Report Type: 
  Country: None (occurrence: None)
  Receive Date: 20070430
  Receipt Date: 20070417
  Transmission Date: 20071010
  Serious: Yes (Hospitalization, Other)
  Sender: FDA-Public Use
  Company Number: PHMT2007CA01066

PATIENT
  Age: 22 Year
  Sex: Male

DRUGS (7)
  1. CLOZARIL [Suspect]
     Indication: SCHIZOPHRENIA
     Dosage: 100 MGM, BID
     Route: 048
     Dates: start: 20070328, end: 20070414
  2. LIPITOR [Concomitant]
  3. CLONAZEPAM [Concomitant]
  4. PREDNISONE TAB [Concomitant]
  5. SERTRALINE [Concomitant]
  6. DEMEROL [Concomitant]
  7. MARIJUANA [Concomitant]
     Dosage: SMOKED WHILE ON PASS FROM HOSPIATL
     Dates: start: 20070414

REACTIONS (15)
  - BACK PAIN [None]
  - BODY TEMPERATURE INCREASED [None]
  - CHEST PAIN [None]
  - DEPRESSED LEVEL OF CONSCIOUSNESS [None]
  - DYSPNOEA [None]
  - HEADACHE [None]
  - HYPERHIDROSIS [None]
  - LETHARGY [None]
  - MYOCARDITIS [None]
  - MYOSITIS [None]
  - PAIN IN EXTREMITY [None]
  - PHARYNGEAL ERYTHEMA [None]
  - RASH [None]
  - RED BLOOD CELL SEDIMENTATION RATE INCREASED [None]
  - TROPONIN INCREASED [None]
